FAERS Safety Report 19386054 (Version 2)
Quarter: 2021Q3

REPORT INFORMATION
  Report Type: Spontaneous
  Country: JP (occurrence: JP)
  Receive Date: 20210608
  Receipt Date: 20210804
  Transmission Date: 20211014
  Serious: Yes (Other)
  Sender: FDA-Public Use
  Company Number: NVSJ2021JP008315

PATIENT
  Age: 76 Year
  Sex: Male
  Weight: 72 kg

DRUGS (5)
  1. BEOVU [Suspect]
     Active Substance: BROLUCIZUMAB-DBLL
     Dosage: 6 MG, LEFT EYE
     Route: 031
     Dates: start: 20201224, end: 20201224
  2. BEOVU [Suspect]
     Active Substance: BROLUCIZUMAB-DBLL
     Dosage: 6 MG, LEFT EYE
     Route: 031
     Dates: start: 20210317, end: 20210317
  3. BEOVU [Suspect]
     Active Substance: BROLUCIZUMAB-DBLL
     Indication: AGE-RELATED MACULAR DEGENERATION
     Dosage: 6 MG, LEFT EYE
     Route: 031
  4. BEOVU [Suspect]
     Active Substance: BROLUCIZUMAB-DBLL
     Dosage: 6 MG, LEFT EYE
     Route: 031
     Dates: start: 20210519, end: 20210519
  5. FAMOTIDINE. [Concomitant]
     Active Substance: FAMOTIDINE
     Indication: PRODUCT USED FOR UNKNOWN INDICATION
     Dosage: 20 MG
     Route: 048
     Dates: start: 20210528

REACTIONS (10)
  - Visual acuity reduced transiently [Recovering/Resolving]
  - Anterior chamber cell [Unknown]
  - Optic disc vascular disorder [Unknown]
  - Vitreous opacities [Unknown]
  - Retinal oedema [Unknown]
  - Keratic precipitates [Unknown]
  - Retinal vasculitis [Recovering/Resolving]
  - Retinal haemorrhage [Unknown]
  - Retinal vascular occlusion [Recovering/Resolving]
  - Vision blurred [Unknown]

NARRATIVE: CASE EVENT DATE: 20210520
